FAERS Safety Report 14794035 (Version 4)
Quarter: 2018Q2

REPORT INFORMATION
  Report Type: Spontaneous
  Country: CA (occurrence: CA)
  Receive Date: 20180423
  Receipt Date: 20180613
  Transmission Date: 20180711
  Serious: Yes (Hospitalization, Other)
  Sender: FDA-Public Use
  Company Number: CA-CELLTRION INC.-2017CA005990

PATIENT

DRUGS (7)
  1. INFLECTRA [Suspect]
     Active Substance: INFLIXIMAB-DYYB
     Dosage: 400 MG, DAILY (EVERY 8 WEEKS)
     Route: 042
     Dates: start: 20180426
  2. INFLECTRA [Suspect]
     Active Substance: INFLIXIMAB-DYYB
     Dosage: 400 MG, DAILY (EVERY 8 WEEKS)
     Route: 042
     Dates: start: 20171026, end: 20171219
  3. GABAPENTIN. [Suspect]
     Active Substance: GABAPENTIN
     Indication: PRODUCT USED FOR UNKNOWN INDICATION
     Dosage: 300 MG, 2X/DAY; UNKNOWN
     Route: 065
     Dates: start: 2014
  4. OXYCODONE                          /00045603/ [Concomitant]
     Active Substance: OXYCODONE
     Dosage: 10 MG, BID
     Route: 048
     Dates: start: 201603
  5. INFLECTRA [Suspect]
     Active Substance: INFLIXIMAB-DYYB
     Indication: COLITIS ULCERATIVE
     Dosage: 300 MG, CYCLIC (EVERY 2, 6 WEEKS, THEN EVERY 8 WEEKS)
     Route: 042
     Dates: start: 20170525, end: 20170831
  6. HUMIRA [Concomitant]
     Active Substance: ADALIMUMAB
     Dosage: UNK
     Route: 065
     Dates: start: 2013, end: 20170404
  7. ARAVA [Concomitant]
     Active Substance: LEFLUNOMIDE
     Dosage: 20 MG, DAILY
     Route: 048
     Dates: start: 201107

REACTIONS (8)
  - Gallbladder disorder [Recovered/Resolved]
  - Influenza [Unknown]
  - Intercepted drug prescribing error [Unknown]
  - Intracranial aneurysm [Recovered/Resolved]
  - Product use issue [Unknown]
  - Drug effect incomplete [Not Recovered/Not Resolved]
  - Scar [Recovered/Resolved]
  - Intestinal fistula [Recovered/Resolved]

NARRATIVE: CASE EVENT DATE: 201611
